FAERS Safety Report 9707607 (Version 6)
Quarter: 2016Q1

REPORT INFORMATION
  Report Type: Spontaneous
  Country: US (occurrence: US)
  Receive Date: 20131125
  Receipt Date: 20160318
  Transmission Date: 20160526
  Serious: Yes (Disabling, Other)
  Sender: FDA-Public Use
  Company Number: US-BAYER-2013-132142

PATIENT
  Age: 21 Year
  Sex: Female

DRUGS (1)
  1. MIRENA [Suspect]
     Active Substance: LEVONORGESTREL
     Indication: GENITAL HAEMORRHAGE
     Dosage: 20 ?G/D, CONT
     Route: 015

REACTIONS (39)
  - Weight increased [Recovered/Resolved]
  - Nausea [Recovered/Resolved]
  - Uterine inflammation [Recovered/Resolved]
  - Adenomyosis [Recovered/Resolved]
  - Depression [Unknown]
  - Alopecia [Recovered/Resolved]
  - Pelvic pain [Recovered/Resolved]
  - Impaired healing [Recovered/Resolved]
  - Liver disorder [Unknown]
  - Uterine cyst [Recovered/Resolved]
  - Dysmenorrhoea [Unknown]
  - Abdominal distension [Unknown]
  - Polycystic ovaries [Recovered/Resolved]
  - Mood swings [Unknown]
  - Abdominal pain [Recovered/Resolved]
  - Memory impairment [Unknown]
  - Menorrhagia [Unknown]
  - Asthenia [Recovered/Resolved]
  - Device ineffective [Unknown]
  - Menorrhagia [Recovered/Resolved]
  - Abdominal pain lower [Recovered/Resolved]
  - Irritability [Recovered/Resolved]
  - Feeling abnormal [Recovered/Resolved]
  - Cervix inflammation [Recovered/Resolved]
  - Endometriosis [Recovered/Resolved]
  - Pallor [Unknown]
  - Ovarian cyst [Recovered/Resolved]
  - Treatment noncompliance [Unknown]
  - Headache [Unknown]
  - Pain [Unknown]
  - Genital haemorrhage [Recovered/Resolved]
  - Arthralgia [Recovered/Resolved]
  - Deafness [Recovered/Resolved]
  - Loss of libido [Recovered/Resolved]
  - Drug hypersensitivity [Unknown]
  - Product use issue [Unknown]
  - Basal cell carcinoma [Unknown]
  - Immune system disorder [Unknown]
  - Polymenorrhoea [Unknown]

NARRATIVE: CASE EVENT DATE: 200611
